FAERS Safety Report 20814174 (Version 2)
Quarter: 2022Q3

REPORT INFORMATION
  Report Type: Spontaneous
  Country: US (occurrence: US)
  Receive Date: 20220511
  Receipt Date: 20220815
  Transmission Date: 20221027
  Serious: Yes (Other)
  Sender: FDA-Public Use
  Company Number: US-NOVARTISPH-NVSC2022US101439

PATIENT
  Age: 66 Year
  Sex: Female
  Weight: 45.5 kg

DRUGS (9)
  1. CLOFAZIMINE [Suspect]
     Active Substance: CLOFAZIMINE
     Indication: Mycobacterium abscessus infection
     Dosage: 100 MG, QD
     Route: 048
     Dates: start: 20210416, end: 20211117
  2. CLOFAZIMINE [Suspect]
     Active Substance: CLOFAZIMINE
     Indication: Mycobacterium chelonae infection
  3. CLOFAZIMINE [Suspect]
     Active Substance: CLOFAZIMINE
     Indication: Mycobacterium fortuitum infection
  4. AZITHROMYCIN [Concomitant]
     Active Substance: AZITHROMYCIN
     Indication: Mycobacterium abscessus infection
     Dosage: UNK
     Route: 065
     Dates: start: 20201223, end: 20210527
  5. AZITHROMYCIN [Concomitant]
     Active Substance: AZITHROMYCIN
     Indication: Mycobacterium fortuitum infection
  6. AZITHROMYCIN [Concomitant]
     Active Substance: AZITHROMYCIN
     Indication: Mycobacterium chelonae infection
  7. AMIKACIN [Concomitant]
     Active Substance: AMIKACIN
     Indication: Mycobacterium abscessus infection
     Dosage: UNK
     Route: 055
     Dates: start: 20200416, end: 20210527
  8. AMIKACIN [Concomitant]
     Active Substance: AMIKACIN
     Indication: Mycobacterium chelonae infection
  9. AMIKACIN [Concomitant]
     Active Substance: AMIKACIN
     Indication: Mycobacterium fortuitum infection

REACTIONS (9)
  - Electrocardiogram QT prolonged [Recovered/Resolved]
  - Oral candidiasis [Recovered/Resolved]
  - Axillary mass [Recovered/Resolved]
  - Paraesthesia [Recovered/Resolved]
  - Pain [Recovered/Resolved]
  - Oropharyngeal pain [Recovered/Resolved]
  - Peripheral swelling [Recovered/Resolved]
  - Nausea [Recovered/Resolved]
  - Fatigue [Recovered/Resolved]

NARRATIVE: CASE EVENT DATE: 20210527
